FAERS Safety Report 9657884 (Version 2)
Quarter: 2013Q4

REPORT INFORMATION
  Report Type: Spontaneous
  Country: FR (occurrence: None)
  Receive Date: 20131029
  Receipt Date: 20131112
  Transmission Date: 20140711
  Serious: Yes (Disabling, Other)
  Sender: FDA-Public Use
  Company Number: ENTC2013-0407

PATIENT
  Age: 92 Year
  Sex: Male

DRUGS (2)
  1. STALEVO (LEVODOPA, CARBIDOPA, ENTACAPONE) [Suspect]
     Indication: PARKINSON^S DISEASE
     Dosage: STRENGTH: 100/25/200 MG (1 DOSAGE FORM , 3 IN 1 D)
     Route: 048
     Dates: start: 20130710, end: 20130718
  2. NORSET [Concomitant]

REACTIONS (9)
  - Insomnia [None]
  - Asthenia [None]
  - Feeling abnormal [None]
  - Fatigue [None]
  - Irritability [None]
  - Muscular weakness [None]
  - Gait disturbance [None]
  - Confusional state [None]
  - Hypotonia [None]
